FAERS Safety Report 7248860-3 (Version None)
Quarter: 2011Q1

REPORT INFORMATION
  Report Type: 
  Country: None (occurrence: None)
  Receive Date: 20110128
  Receipt Date: 20100601
  Transmission Date: 20110831
  Serious: Yes (Hospitalization, Other)
  Sender: FDA-Public Use
  Company Number: US-BAYER-201012483NA

PATIENT
  Sex: Female
  Weight: 62.585 kg

DRUGS (8)
  1. ALBUTEROL [Concomitant]
     Indication: ASTHMA
  2. VICOPROFEN [Concomitant]
  3. UNCODEABLE ^UNCLASSIFIABLE^ [Concomitant]
     Dosage: UNK UNK, PRN
  4. ABILIFY [Concomitant]
     Indication: BIPOLAR DISORDER
     Dosage: UNK
     Dates: start: 20060101, end: 20090101
  5. YAZ [Suspect]
     Indication: CONTRACEPTION
     Dates: start: 20090501, end: 20090901
  6. ADDERALL 10 [Concomitant]
     Indication: ATTENTION DEFICIT/HYPERACTIVITY DISORDER
     Dosage: UNK
     Dates: start: 20050101, end: 20100101
  7. UNCODEABLE ^UNCLASSIFIABLE^ [Concomitant]
     Indication: BIPOLAR DISORDER
     Dosage: UNK
     Dates: start: 20090101
  8. PROZAC [Concomitant]
     Indication: DEPRESSION
     Dosage: UNK
     Dates: start: 20070101, end: 20100101

REACTIONS (5)
  - NAUSEA [None]
  - ABDOMINAL PAIN LOWER [None]
  - BILIARY COLIC [None]
  - CHOLELITHIASIS [None]
  - VOMITING [None]
